FAERS Safety Report 8512824-X (Version None)
Quarter: 2012Q3

REPORT INFORMATION
  Report Type: 
  Country: None (occurrence: None)
  Receive Date: 20120716
  Receipt Date: 20120706
  Transmission Date: 20120928
  Serious: Yes (Other)
  Sender: FDA-Public Use
  Company Number: DE-PFIZER INC-2011005866

PATIENT
  Age: 72 Year
  Sex: Male
  Weight: 62 kg

DRUGS (10)
  1. RIOCIGUAT [Suspect]
     Dosage: 2 MG, 3X/DAY
     Route: 048
     Dates: end: 20110103
  2. ALLOPURINOL [Concomitant]
     Dosage: UNK
     Dates: start: 20050101
  3. SILDENAFIL CITRATE [Suspect]
     Indication: PULMONARY HYPERTENSION
     Dosage: 60 MG, DAILY
     Route: 048
     Dates: start: 20080603
  4. BEGRIVAC [Concomitant]
     Dosage: UNK
     Dates: start: 20101011, end: 20101011
  5. BLINDED THERAPY [Suspect]
     Dosage: UP TO 2.5 MG TID,(TITRATION 1.0 - 1.5 - 2.0)
     Dates: start: 20100819, end: 20101111
  6. BISOPROLOL [Concomitant]
     Dosage: UNK
     Dates: start: 20090701
  7. INSPRA [Concomitant]
     Dosage: UNK
     Dates: start: 20101112
  8. RIOCIGUAT [Suspect]
     Dosage: 2 MG, 3X/DAY
     Route: 048
     Dates: start: 20101111, end: 20101222
  9. FUROSEMIDE [Concomitant]
     Dosage: UNK
     Dates: start: 20100428, end: 20101222
  10. MARCUMAR [Concomitant]
     Dosage: UNK
     Dates: start: 20080603

REACTIONS (1)
  - LOSS OF CONSCIOUSNESS [None]
